FAERS Safety Report 4783889-6 (Version None)
Quarter: 2005Q3

REPORT INFORMATION
  Report Type: 
  Country: None (occurrence: None)
  Receive Date: 20050928
  Receipt Date: 20050907
  Transmission Date: 20060218
  Serious: Yes (Hospitalization, Other)
  Sender: FDA-Public Use
  Company Number: WAES 0509AUT00007

PATIENT
  Age: 15 Year
  Sex: Male

DRUGS (6)
  1. COSMEGEN [Suspect]
     Indication: EWING'S SARCOMA
  2. VINCRISTINE SULFATE [Suspect]
     Indication: EWING'S SARCOMA
  3. IFOSFAMIDE [Suspect]
     Indication: EWING'S SARCOMA
  4. CYCLOPHOSPHAMIDE [Suspect]
     Indication: EWING'S SARCOMA
  5. DOXORUBICIN HCL [Suspect]
     Indication: EWING'S SARCOMA
  6. ETOPOSIDE [Suspect]
     Indication: EWING'S SARCOMA

REACTIONS (1)
  - FEBRILE NEUTROPENIA [None]
